FAERS Safety Report 21814537 (Version 2)
Quarter: 2023Q1

REPORT INFORMATION
  Report Type: Report from Study
  Country: US (occurrence: US)
  Receive Date: 20230104
  Receipt Date: 20230228
  Transmission Date: 20230418
  Serious: Yes (Other)
  Sender: FDA-Public Use
  Company Number: US-ABBVIE-4256568

PATIENT
  Age: 63 Year
  Sex: Male

DRUGS (2)
  1. IMBRUVICA [Suspect]
     Active Substance: IBRUTINIB
     Indication: Product used for unknown indication
     Route: 048
  2. RITUXAN [Suspect]
     Active Substance: RITUXIMAB
     Indication: Product used for unknown indication
     Route: 065

REACTIONS (13)
  - Metastatic neoplasm [Unknown]
  - Dry mouth [Unknown]
  - Oropharyngeal pain [Unknown]
  - Rhinalgia [Unknown]
  - White blood cell count decreased [Unknown]
  - Mouth haemorrhage [Unknown]
  - Hand fracture [Unknown]
  - Ligament rupture [Unknown]
  - Dry throat [Unknown]
  - Purulence [Unknown]
  - Muscle spasms [Unknown]
  - Bone pain [Unknown]
  - Cancer pain [Unknown]

NARRATIVE: CASE EVENT DATE: 20221101
